FAERS Safety Report 16299040 (Version 1)
Quarter: 2019Q2

REPORT INFORMATION
  Report Type: Spontaneous
  Country: DE (occurrence: DE)
  Receive Date: 20190510
  Receipt Date: 20190510
  Transmission Date: 20190711
  Serious: Yes (Other)
  Sender: FDA-Public Use
  Company Number: DE-ALLERGAN-1919685US

PATIENT
  Sex: Female
  Weight: 55 kg

DRUGS (1)
  1. OFLOXACIN UNK [Suspect]
     Active Substance: OFLOXACIN
     Indication: CORNEAL EROSION
     Dosage: DAILY DOSE: 1 DF DOSAGE FORM EVERY TOTAL
     Route: 047

REACTIONS (6)
  - Eye irritation [Recovering/Resolving]
  - Lacrimation increased [Recovering/Resolving]
  - Conjunctivitis [Recovering/Resolving]
  - Eye swelling [Recovering/Resolving]
  - Eye pain [Recovering/Resolving]
  - Blepharitis [Recovering/Resolving]

NARRATIVE: CASE EVENT DATE: 20190406
